FAERS Safety Report 18034398 (Version 2)
Quarter: 2020Q3

REPORT INFORMATION
  Report Type: Spontaneous
  Country: US (occurrence: US)
  Receive Date: 20200716
  Receipt Date: 20200728
  Transmission Date: 20201103
  Serious: Yes (Other)
  Sender: FDA-Public Use
  Company Number: US-TEVA-2020-US-1801992

PATIENT
  Age: 78 Year
  Sex: Female

DRUGS (4)
  1. ALYQ [Suspect]
     Active Substance: TADALAFIL
     Route: 048
     Dates: end: 20200630
  2. OPSUMIT [Suspect]
     Active Substance: MACITENTAN
     Route: 048
  3. ORENITRAM [Suspect]
     Active Substance: TREPROSTINIL
     Indication: PULMONARY ARTERIAL HYPERTENSION
     Dosage: 3.75 MILLIGRAM DAILY;
     Route: 048
     Dates: start: 20200509
  4. ORENITRAM [Suspect]
     Active Substance: TREPROSTINIL
     Dosage: 4.125 MILLIGRAM DAILY; DOSE: DOSE TO INCREASE BY ON EACH TITRATION WAS INCREASED FROM 0.125MG TO 0.2
     Route: 048

REACTIONS (6)
  - Therapy interrupted [Unknown]
  - Product availability issue [Unknown]
  - Fatigue [Recovering/Resolving]
  - Haematochezia [Unknown]
  - Dyspnoea [Recovering/Resolving]
  - Headache [Recovering/Resolving]

NARRATIVE: CASE EVENT DATE: 20200516
